FAERS Safety Report 7795306 (Version 5)
Quarter: 2013Q2

REPORT INFORMATION
  Report Type: Spontaneous
  Country: DE (occurrence: DE)
  Receive Date: 20110201
  Receipt Date: 20130415
  Transmission Date: 20140414
  Serious: Yes (Other)
  Sender: FDA-Public Use
  Company Number: DE-BAYER-201015944GPV

PATIENT
  Age: 51 Year
  Sex: Female
  Weight: 64 kg

DRUGS (2)
  1. AVALOX [Suspect]
     Indication: BRONCHITIS
     Dosage: DAILY DOSE 400 MG
     Route: 048
     Dates: start: 200912, end: 20100106
  2. AVALOX [Suspect]
     Indication: SINUSITIS

REACTIONS (34)
  - Tendon pain [Recovering/Resolving]
  - Myalgia [Recovering/Resolving]
  - Asthenia [Recovering/Resolving]
  - Nausea [Recovering/Resolving]
  - Chest pain [Recovering/Resolving]
  - Pyrexia [Recovering/Resolving]
  - Arthralgia [Recovering/Resolving]
  - Rash [Recovering/Resolving]
  - Vasculitis [Recovering/Resolving]
  - Temperature intolerance [Recovering/Resolving]
  - Neuralgia [Recovering/Resolving]
  - Tinnitus [Recovering/Resolving]
  - Rash morbilliform [Recovering/Resolving]
  - Muscle spasms [Recovering/Resolving]
  - Asthenia [Recovering/Resolving]
  - Tenderness [Recovering/Resolving]
  - Liver function test abnormal [None]
  - Diarrhoea [None]
  - Loss of consciousness [None]
  - Syncope [None]
  - Skin disorder [None]
  - Back pain [None]
  - Photosensitivity reaction [None]
  - Hallucination [None]
  - Memory impairment [None]
  - Pain in extremity [None]
  - Tendon pain [None]
  - Polyarthritis [None]
  - Muscle strain [None]
  - Pain in extremity [None]
  - Oedema peripheral [None]
  - Headache [None]
  - Memory impairment [None]
  - Tendon pain [None]
